FAERS Safety Report 4596700-3 (Version None)
Quarter: 2005Q1

REPORT INFORMATION
  Report Type: 
  Country: None (occurrence: None)
  Receive Date: 20050302
  Receipt Date: 20050207
  Transmission Date: 20050727
  Serious: Yes (Life-Threatening, Hospitalization, Other)
  Sender: FDA-Public Use
  Company Number: US-GLAXOSMITHKLINE-A0544249A

PATIENT
  Age: 2 Month
  Sex: Male
  Weight: 5.5 kg

DRUGS (2)
  1. PAXIL [Suspect]
     Indication: PANIC DISORDER
     Dates: start: 20030601
  2. PRENATAL VITAMINS [Concomitant]
     Indication: VITAMIN SUPPLEMENTATION
     Route: 048
     Dates: start: 20040401

REACTIONS (12)
  - DRUG EXPOSURE DURING PREGNANCY [None]
  - DYSPNOEA [None]
  - FEELING JITTERY [None]
  - HYPOTHERMIA NEONATAL [None]
  - ILL-DEFINED DISORDER [None]
  - JAUNDICE NEONATAL [None]
  - NEONATAL APNOEIC ATTACK [None]
  - NEONATAL INFECTION [None]
  - NERVOUS SYSTEM DISORDER [None]
  - PREGNANCY [None]
  - RESPIRATORY RATE INCREASED [None]
  - TIC [None]
